FAERS Safety Report 23030117 (Version 1)
Quarter: 2023Q4

REPORT INFORMATION
  Report Type: Spontaneous
  Country: US (occurrence: US)
  Receive Date: 20231005
  Receipt Date: 20231005
  Transmission Date: 20240110
  Serious: Yes (Hospitalization, Other)
  Sender: FDA-Public Use
  Company Number: US-IPCA LABORATORIES LIMITED-IPC-2023-US-001641

PATIENT

DRUGS (1)
  1. ONDANSETRON [Suspect]
     Active Substance: ONDANSETRON
     Indication: Product used for unknown indication
     Dosage: 20 DOSAGE FORM (6.4 MILLIGRAM/KILOGRAM)
     Route: 048

REACTIONS (8)
  - Electrocardiogram QT prolonged [Unknown]
  - Seizure [Unknown]
  - Respiratory depression [Unknown]
  - Hypotension [Unknown]
  - Somnolence [Unknown]
  - Hypothermia [Unknown]
  - Toxicity to various agents [Unknown]
  - Accidental overdose [Unknown]
